FAERS Safety Report 12159281 (Version 1)
Quarter: 2016Q1

REPORT INFORMATION
  Report Type: Spontaneous
  Country: US (occurrence: None)
  Receive Date: 20160307
  Receipt Date: 20160307
  Transmission Date: 20160526
  Serious: No
  Sender: FDA-Public Use
  Company Number: None

PATIENT
  Age: 70 Year
  Sex: Female

DRUGS (14)
  1. METOCLOPRAM [Concomitant]
     Active Substance: METOCLOPRAMIDE
  2. ATORVASTATIN [Concomitant]
     Active Substance: ATORVASTATIN
  3. OXYCONTIN [Concomitant]
     Active Substance: OXYCODONE HYDROCHLORIDE
  4. ONDANSETRON [Concomitant]
     Active Substance: ONDANSETRON
  5. KETOCONAZOLE. [Concomitant]
     Active Substance: KETOCONAZOLE
  6. XELJANZ [Suspect]
     Active Substance: TOFACITINIB CITRATE
     Indication: RHEUMATOID ARTHRITIS
     Route: 048
  7. CLINDAMYCIN [Concomitant]
     Active Substance: CLINDAMYCIN\CLINDAMYCIN PHOSPHATE
  8. CLOBETASOL [Concomitant]
     Active Substance: CLOBETASOL
  9. ESOMEPRA [Concomitant]
     Active Substance: ESOMEPRAZOLE
  10. LYRICA [Concomitant]
     Active Substance: PREGABALIN
  11. ACETAMINOPHEN W/HYDROCODONE [Concomitant]
     Active Substance: ACETAMINOPHEN\HYDROCODONE
  12. HYOSCYAMINE. [Concomitant]
     Active Substance: HYOSCYAMINE
  13. FURADANTIN [Concomitant]
     Active Substance: NITROFURANTOIN
  14. MINOCYCLINE [Concomitant]
     Active Substance: MINOCYCLINE\MINOCYCLINE HYDROCHLORIDE

REACTIONS (4)
  - Therapy cessation [None]
  - Condition aggravated [None]
  - Ulcer [None]
  - Erythema [None]

NARRATIVE: CASE EVENT DATE: 20160209
